FAERS Safety Report 6616717-4 (Version None)
Quarter: 2010Q1

REPORT INFORMATION
  Report Type: 
  Country: None (occurrence: None)
  Receive Date: 20100305
  Receipt Date: 20100223
  Transmission Date: 20100710
  Serious: Yes (Hospitalization, Other)
  Sender: FDA-Public Use
  Company Number: US-ABBOTT-10P-163-0628733-00

PATIENT
  Sex: Male
  Weight: 72.64 kg

DRUGS (6)
  1. ADVICOR [Suspect]
     Indication: BLOOD CHOLESTEROL INCREASED
     Dosage: 1000/40MG
     Route: 048
     Dates: start: 20070101, end: 20081201
  2. ADVICOR [Suspect]
     Dosage: 1000/40MG
     Route: 048
     Dates: end: 20090701
  3. TRILIPIX [Suspect]
     Indication: BLOOD CHOLESTEROL INCREASED
     Route: 048
     Dates: start: 20090101, end: 20090701
  4. ASPIRIN [Concomitant]
     Indication: PROPHYLAXIS
     Route: 048
  5. EXFORGE [Concomitant]
     Indication: HYPERTENSION
     Dosage: 5/160, 12.5
     Route: 048
  6. CARVEDILOL [Concomitant]
     Indication: HYPERTENSION
     Route: 048

REACTIONS (5)
  - BLOOD TRIGLYCERIDES INCREASED [None]
  - DYSURIA [None]
  - GASTROINTESTINAL HAEMORRHAGE [None]
  - HERNIA [None]
  - RECTAL HAEMORRHAGE [None]
